FAERS Safety Report 10267801 (Version 1)
Quarter: 2014Q2

REPORT INFORMATION
  Report Type: Report from Study
  Country: KR (occurrence: KR)
  Receive Date: 20140630
  Receipt Date: 20140630
  Transmission Date: 20141212
  Serious: Yes (Hospitalization)
  Sender: FDA-Public Use
  Company Number: KR-SA-2014SA083774

PATIENT
  Age: 46 Year
  Sex: Male
  Weight: 66.4 kg

DRUGS (13)
  1. THYMOGLOBULINE [Suspect]
     Indication: APLASTIC ANAEMIA
     Route: 042
     Dates: start: 20140421, end: 20140425
  2. CYCLOSPORINE [Concomitant]
     Indication: APLASTIC ANAEMIA
     Route: 048
     Dates: start: 20140421, end: 20140422
  3. CYCLOSPORINE [Concomitant]
     Indication: APLASTIC ANAEMIA
     Route: 048
     Dates: start: 20140423, end: 20140425
  4. CYCLOSPORINE [Concomitant]
     Indication: APLASTIC ANAEMIA
     Route: 048
     Dates: start: 20140426, end: 20140429
  5. CYCLOSPORINE [Concomitant]
     Indication: APLASTIC ANAEMIA
     Route: 048
     Dates: start: 20140430, end: 20140605
  6. METHYLPREDNISOLONE [Concomitant]
     Indication: APLASTIC ANAEMIA
     Route: 048
     Dates: start: 20140426, end: 20140429
  7. METHYLPREDNISOLONE [Concomitant]
     Indication: APLASTIC ANAEMIA
     Route: 048
     Dates: start: 20140430, end: 20140506
  8. METHYLPREDNISOLONE [Concomitant]
     Indication: APLASTIC ANAEMIA
     Route: 048
     Dates: start: 20140507, end: 20140519
  9. METHYLPREDNISOLONE [Concomitant]
     Indication: APLASTIC ANAEMIA
     Route: 048
     Dates: start: 20140520, end: 20140602
  10. METHYLPREDNISOLONE [Concomitant]
     Indication: APLASTIC ANAEMIA
     Route: 048
     Dates: start: 20140603, end: 20140609
  11. HYDROCORTISONE [Concomitant]
     Route: 042
     Dates: start: 20140606, end: 20140613
  12. TRAMADOL [Concomitant]
     Indication: HEADACHE
     Route: 048
     Dates: start: 20140531, end: 20140611
  13. GANCICLOVIR [Concomitant]
     Indication: CYTOMEGALOVIRUS INFECTION
     Route: 042
     Dates: start: 20140612, end: 20140617

REACTIONS (3)
  - Cholecystitis acute [Recovering/Resolving]
  - Cholangitis [Recovering/Resolving]
  - Lymphadenitis viral [Recovering/Resolving]
